FAERS Safety Report 15945269 (Version 1)
Quarter: 2019Q1

REPORT INFORMATION
  Report Type: Spontaneous
  Country: US (occurrence: US)
  Receive Date: 20190212
  Receipt Date: 20190212
  Transmission Date: 20190417
  Serious: Yes (Hospitalization)
  Sender: FDA-Public Use
  Company Number: None

PATIENT
  Age: 67 Year
  Weight: 53.7 kg

DRUGS (1)
  1. PEMBROLIZUMAB. [Suspect]
     Active Substance: PEMBROLIZUMAB
     Indication: METASTATIC MALIGNANT MELANOMA
     Dosage: ?          OTHER FREQUENCY:MONTHLY;?
     Route: 040
     Dates: start: 20171229, end: 20190121

REACTIONS (2)
  - Weight decreased [None]
  - Diabetic ketoacidosis [None]

NARRATIVE: CASE EVENT DATE: 20190211
